FAERS Safety Report 9368658 (Version 1)
Quarter: 2013Q2

REPORT INFORMATION
  Report Type: Spontaneous
  Country: US (occurrence: US)
  Receive Date: 20130626
  Receipt Date: 20130626
  Transmission Date: 20140414
  Serious: No
  Sender: FDA-Public Use
  Company Number: US-ASTELLAS-2013US001108

PATIENT
  Sex: Female

DRUGS (2)
  1. VESICARE [Suspect]
     Indication: URGE INCONTINENCE
     Dosage: 10 MG, UID/QD
     Route: 048
  2. VESICARE [Suspect]
     Indication: MUSCLE SPASMS

REACTIONS (1)
  - Off label use [Unknown]
